FAERS Safety Report 23720901 (Version 2)
Quarter: 2024Q2

REPORT INFORMATION
  Report Type: Spontaneous
  Country: AT (occurrence: AT)
  Receive Date: 20240409
  Receipt Date: 20240415
  Transmission Date: 20240716
  Serious: Yes (Other)
  Sender: FDA-Public Use
  Company Number: AT-ABBVIE-5705521

PATIENT
  Age: 52 Year
  Sex: Female
  Weight: 87 kg

DRUGS (1)
  1. HUMIRA [Suspect]
     Active Substance: ADALIMUMAB
     Indication: Rheumatoid arthritis
     Route: 058
     Dates: start: 2007, end: 2007

REACTIONS (23)
  - Bursa removal [Unknown]
  - Bronchial wall thickening [Unknown]
  - Toe amputation [Unknown]
  - Rheumatoid nodule [Unknown]
  - Bursa removal [Unknown]
  - Bursitis [Recovered/Resolved]
  - Productive cough [Unknown]
  - Bursitis [Unknown]
  - Acquired bronchial cyst [Unknown]
  - Bursitis [Recovered/Resolved]
  - Bursa removal [Unknown]
  - Bronchoscopy abnormal [Unknown]
  - Depression [Unknown]
  - Therapeutic product effect incomplete [Unknown]
  - Urinary retention [Unknown]
  - Dyspnoea [Unknown]
  - Suicide attempt [Unknown]
  - Joint swelling [Unknown]
  - Arthralgia [Unknown]
  - Respiratory disorder [Unknown]
  - Constipation [Unknown]
  - Stress urinary incontinence [Unknown]
  - Faeces soft [Unknown]

NARRATIVE: CASE EVENT DATE: 20070101
